FAERS Safety Report 7439560-5 (Version None)
Quarter: 2011Q2

REPORT INFORMATION
  Report Type: 
  Country: None (occurrence: None)
  Receive Date: 20110427
  Receipt Date: 20110425
  Transmission Date: 20111010
  Serious: Yes (Hospitalization)
  Sender: FDA-Public Use
  Company Number: ES-PFIZER INC-2011088462

PATIENT
  Age: 75 Year
  Sex: Female

DRUGS (1)
  1. LYRICA [Suspect]
     Indication: FIBROMYALGIA
     Dosage: 112.5 MG, 2X/DAY
     Route: 048
     Dates: start: 20080501, end: 20100816

REACTIONS (9)
  - HYPERHIDROSIS [None]
  - OEDEMA [None]
  - URTICARIA [None]
  - ASTHENIA [None]
  - FLUID RETENTION [None]
  - INSOMNIA [None]
  - DIZZINESS [None]
  - NERVOUSNESS [None]
  - TACHYCARDIA [None]
